FAERS Safety Report 6727073-5 (Version None)
Quarter: 2010Q2

REPORT INFORMATION
  Report Type: 
  Country: None (occurrence: None)
  Receive Date: 20100517
  Receipt Date: 20100430
  Transmission Date: 20101027
  Serious: Yes (Hospitalization, Other)
  Sender: FDA-Public Use
  Company Number: US-BAYER-200944112NA

PATIENT
  Age: 38 Year
  Sex: Female

DRUGS (3)
  1. YAZ [Suspect]
     Indication: PREMENSTRUAL SYNDROME
     Route: 048
  2. YASMIN [Suspect]
     Indication: PREMENSTRUAL SYNDROME
     Route: 048
  3. OCELLA [Suspect]
     Indication: PREMENSTRUAL SYNDROME

REACTIONS (2)
  - MENTAL DISORDER [None]
  - PULMONARY EMBOLISM [None]
